FAERS Safety Report 8388989-X (Version None)
Quarter: 2012Q2

REPORT INFORMATION
  Report Type: 
  Country: None (occurrence: None)
  Receive Date: 20120528
  Receipt Date: 20120524
  Transmission Date: 20120825
  Serious: No
  Sender: FDA-Public Use
  Company Number: US-PFIZER INC-2012096079

PATIENT
  Sex: Male
  Weight: 83 kg

DRUGS (3)
  1. CHANTIX [Suspect]
     Indication: SMOKING CESSATION THERAPY
     Dosage: 0.5 MG DAILY
     Dates: start: 20120217
  2. CELEXA [Concomitant]
     Indication: DEPRESSION
     Dosage: 20 MG DAILY
  3. AMBIEN [Concomitant]
     Dosage: UNK

REACTIONS (1)
  - IRRITABILITY [None]
